FAERS Safety Report 6970690-8 (Version None)
Quarter: 2010Q3

REPORT INFORMATION
  Report Type: 
  Country: None (occurrence: None)
  Receive Date: 20100908
  Receipt Date: 20100827
  Transmission Date: 20110219
  Serious: Yes (Other)
  Sender: FDA-Public Use
  Company Number: US-PFIZER INC-2010076968

PATIENT
  Sex: Female

DRUGS (5)
  1. CHANTIX [Suspect]
     Indication: SMOKING CESSATION THERAPY
     Dosage: 1.0 MG, UNK
     Route: 048
     Dates: start: 20080125, end: 20080201
  2. CHANTIX [Suspect]
     Dosage: UNK
     Dates: start: 20070823, end: 20070901
  3. NEXIUM [Concomitant]
     Indication: GASTROOESOPHAGEAL REFLUX DISEASE
     Dosage: UNK
     Dates: start: 20060101
  4. NEXIUM [Concomitant]
     Indication: IRRITABLE BOWEL SYNDROME
  5. DILANTIN [Concomitant]
     Indication: CONVULSION
     Dosage: UNK
     Dates: start: 20051109, end: 20100401

REACTIONS (5)
  - ANXIETY [None]
  - DEPRESSION [None]
  - MENTAL DISORDER [None]
  - SUICIDAL IDEATION [None]
  - TREMOR [None]
